FAERS Safety Report 9820662 (Version 2)
Quarter: 2014Q2

REPORT INFORMATION
  Report Type: Spontaneous
  Country: US (occurrence: US)
  Receive Date: 20140116
  Receipt Date: 20140430
  Transmission Date: 20141212
  Serious: Yes (Hospitalization)
  Sender: FDA-Public Use
  Company Number: US-GILEAD-2014-0092209

PATIENT
  Sex: Female

DRUGS (3)
  1. LETAIRIS [Suspect]
     Indication: PULMONARY HYPERTENSION
     Dosage: 10 MG, QD
     Route: 048
     Dates: start: 20091223
  2. LETAIRIS [Suspect]
     Indication: SCLERODERMA
  3. CEFDINIR [Concomitant]
     Dosage: 300 MG, BID

REACTIONS (1)
  - Bronchitis [Unknown]
